FAERS Safety Report 7557216-5 (Version None)
Quarter: 2011Q2

REPORT INFORMATION
  Report Type: 
  Country: None (occurrence: None)
  Receive Date: 20110620
  Receipt Date: 20101221
  Transmission Date: 20111010
  Serious: No
  Sender: FDA-Public Use
  Company Number: US-MYLANLABS-2010S1023158

PATIENT
  Age: 65 Year
  Sex: Female
  Weight: 63.5 kg

DRUGS (10)
  1. LISINOPRIL [Concomitant]
  2. SIMVASTATIN [Concomitant]
  3. PERFOROMIST [Suspect]
     Indication: CHRONIC OBSTRUCTIVE PULMONARY DISEASE
     Route: 055
     Dates: start: 20101101, end: 20101201
  4. ASPIRIN [Concomitant]
  5. ALBUTEROL SULFATE AUTOHALER [Concomitant]
  6. PULMICORT [Concomitant]
  7. GABAPENTIN [Concomitant]
  8. PERFOROMIST [Suspect]
     Route: 055
     Dates: start: 20101211
  9. LORAZEPAM [Concomitant]
  10. OMEPRAZOLE [Concomitant]

REACTIONS (2)
  - CHRONIC OBSTRUCTIVE PULMONARY DISEASE [None]
  - DRUG INEFFECTIVE [None]
